FAERS Safety Report 25187182 (Version 1)
Quarter: 2025Q2

REPORT INFORMATION
  Report Type: Spontaneous
  Country: US (occurrence: US)
  Receive Date: 20250411
  Receipt Date: 20250411
  Transmission Date: 20250717
  Serious: Yes (Hospitalization, Other)
  Sender: ACCORD
  Company Number: US-Accord-478100

PATIENT
  Age: 43 Year
  Sex: Female

DRUGS (16)
  1. CARBOPLATIN [Interacting]
     Active Substance: CARBOPLATIN
     Indication: HER2 positive breast cancer
     Dosage: AREA UNDER THE CURVE (AUC) OF 6
  2. DOCETAXEL [Interacting]
     Active Substance: DOCETAXEL
     Indication: HER2 positive breast cancer
  3. TRASTUZUMAB [Interacting]
     Active Substance: TRASTUZUMAB
     Indication: HER2 positive breast cancer
     Dosage: LOADING DOSE
  4. PERTUZUMAB [Interacting]
     Active Substance: PERTUZUMAB
     Indication: HER2 positive breast cancer
     Dosage: LOADING DOSE
  5. APREPITANT [Concomitant]
     Active Substance: APREPITANT
     Indication: Premedication
  6. DEXAMETHASONE [Concomitant]
     Active Substance: DEXAMETHASONE
     Indication: Premedication
  7. PALONOSETRON HYDROCHLORIDE [Concomitant]
     Active Substance: PALONOSETRON HYDROCHLORIDE
     Indication: Premedication
  8. PEGFILGRASTIM [Concomitant]
     Active Substance: PEGFILGRASTIM
  9. TRASTUZUMAB [Interacting]
     Active Substance: TRASTUZUMAB
     Indication: Breast cancer stage III
  10. PERTUZUMAB [Interacting]
     Active Substance: PERTUZUMAB
     Indication: Breast cancer stage III
  11. TRASTUZUMAB [Interacting]
     Active Substance: TRASTUZUMAB
     Indication: HER2 positive breast cancer
  12. TRASTUZUMAB [Interacting]
     Active Substance: TRASTUZUMAB
     Indication: Breast cancer stage III
     Dosage: LOADING DOSE
  13. CARBOPLATIN [Interacting]
     Active Substance: CARBOPLATIN
     Indication: Breast cancer stage III
     Dosage: AREA UNDER THE CURVE (AUC) OF 6
  14. DOCETAXEL [Interacting]
     Active Substance: DOCETAXEL
     Indication: Breast cancer stage III
  15. PERTUZUMAB [Interacting]
     Active Substance: PERTUZUMAB
     Indication: HER2 positive breast cancer
  16. PERTUZUMAB [Interacting]
     Active Substance: PERTUZUMAB
     Indication: Breast cancer stage III
     Dosage: LOADING DOSE

REACTIONS (3)
  - Cystitis haemorrhagic [Recovered/Resolved]
  - Off label use [Unknown]
  - Drug interaction [Unknown]
